FAERS Safety Report 24819226 (Version 2)
Quarter: 2025Q1

REPORT INFORMATION
  Report Type: Spontaneous
  Country: FR (occurrence: FR)
  Receive Date: 20250108
  Receipt Date: 20250114
  Transmission Date: 20250409
  Serious: Yes (Death)
  Sender: PFIZER
  Company Number: FR-PFIZER INC-PV202500001135

PATIENT

DRUGS (1)
  1. ELRANATAMAB [Suspect]
     Active Substance: ELRANATAMAB
     Dates: end: 20240524

REACTIONS (1)
  - Neoplasm progression [Fatal]
